FAERS Safety Report 25258630 (Version 2)
Quarter: 2025Q3

REPORT INFORMATION
  Report Type: Spontaneous
  Country: US (occurrence: US)
  Receive Date: 20250501
  Receipt Date: 20250701
  Transmission Date: 20251020
  Serious: Yes (Other)
  Sender: CSL BEHRING
  Company Number: US-BEH-2025202975

PATIENT
  Age: 70 Year
  Sex: Female
  Weight: 62.585 kg

DRUGS (3)
  1. HIZENTRA [Suspect]
     Active Substance: HUMAN IMMUNOGLOBULIN G
     Indication: Immunodeficiency common variable
     Dosage: 8 G, QW
     Route: 058
     Dates: start: 202503
  2. HIZENTRA [Suspect]
     Active Substance: HUMAN IMMUNOGLOBULIN G
     Dosage: 8 G, QW
     Route: 058
     Dates: start: 202412
  3. ACETAMINOPHEN [Concomitant]
     Active Substance: ACETAMINOPHEN

REACTIONS (7)
  - Syncope [Unknown]
  - Urinary tract infection [Unknown]
  - Weight decreased [Unknown]
  - Pruritus [Unknown]
  - Illness [Unknown]
  - Infection [Unknown]
  - Arthralgia [Unknown]

NARRATIVE: CASE EVENT DATE: 20250617
